FAERS Safety Report 7642765-1 (Version None)
Quarter: 2011Q3

REPORT INFORMATION
  Report Type: 
  Country: None (occurrence: None)
  Receive Date: 20110728
  Receipt Date: 20110720
  Transmission Date: 20111222
  Serious: Yes (Other)
  Sender: FDA-Public Use
  Company Number: PHHY2011US65857

PATIENT
  Age: 76 Year
  Sex: Female

DRUGS (6)
  1. FAMOTIDINE [Concomitant]
     Dosage: UNK UKN, UNK
  2. OXYCODONE/ACETAMINOPHEN [Concomitant]
     Indication: PAIN IN EXTREMITY
     Dosage: 5 MG/325 MG EVERY 6 HOURS PRN
  3. GLYBURIDE [Concomitant]
     Indication: PAIN IN EXTREMITY
     Dosage: 10 MG, BID
  4. GABAPENTIN [Suspect]
     Indication: DIABETIC NEUROPATHY
     Dosage: 1200 MG, Q8H
  5. GABAPENTIN [Suspect]
     Dosage: 600 MG, Q6H
  6. ZOLPIDEM [Concomitant]
     Dosage: 5 MG AT BEDTIME

REACTIONS (8)
  - RESPIRATORY DISTRESS [None]
  - ANXIETY [None]
  - CONFUSIONAL STATE [None]
  - AKATHISIA [None]
  - RESTLESSNESS [None]
  - LETHARGY [None]
  - PAIN IN EXTREMITY [None]
  - AGITATION [None]
